FAERS Safety Report 18161108 (Version 2)
Quarter: 2020Q3

REPORT INFORMATION
  Report Type: Spontaneous
  Country: US (occurrence: US)
  Receive Date: 20200818
  Receipt Date: 20200907
  Transmission Date: 20201103
  Serious: Yes (Other)
  Sender: FDA-Public Use
  Company Number: US-LUPIN PHARMACEUTICALS INC.-2020-04725

PATIENT
  Age: 86 Year
  Sex: Female
  Weight: 55.78 kg

DRUGS (2)
  1. AMLODIPINE BESYLATE TABLETS USP, 2.5 MG [Suspect]
     Active Substance: AMLODIPINE BESYLATE
     Indication: HYPERTENSION
     Dosage: 1 DOSAGE FORM, QD
     Route: 048
     Dates: start: 20200406
  2. AMLODIPINE BESYLATE TABLETS USP, 2.5 MG [Suspect]
     Active Substance: AMLODIPINE BESYLATE
     Dosage: 1 DOSAGE FORM, QD
     Route: 048
     Dates: start: 20200617

REACTIONS (9)
  - Wrong technique in product usage process [Unknown]
  - Excessive cerumen production [Recovered/Resolved]
  - Product physical consistency issue [Unknown]
  - Hypertension [Recovered/Resolved]
  - Hypoacusis [Recovered/Resolved]
  - Nervousness [Recovering/Resolving]
  - Product quality issue [Unknown]
  - Choking [Recovering/Resolving]
  - Ear pruritus [Recovering/Resolving]

NARRATIVE: CASE EVENT DATE: 20200406
